FAERS Safety Report 6084116-2 (Version None)
Quarter: 2009Q1

REPORT INFORMATION
  Report Type: 
  Country: None (occurrence: None)
  Receive Date: 20090219
  Receipt Date: 20090205
  Transmission Date: 20090719
  Serious: Yes (Hospitalization, Disabling, Other)
  Sender: FDA-Public Use
  Company Number: US-MERCK-0802USA04812

PATIENT
  Age: 37 Year
  Sex: Female
  Weight: 64 kg

DRUGS (1)
  1. FOSAMAX [Suspect]
     Indication: OSTEOPOROSIS
     Route: 048
     Dates: end: 20060101

REACTIONS (87)
  - ABDOMINAL PAIN [None]
  - ADDISON'S DISEASE [None]
  - ADHESION [None]
  - ADRENAL INSUFFICIENCY [None]
  - ANAEMIA OF CHRONIC DISEASE [None]
  - ANAEMIA VITAMIN B12 DEFICIENCY [None]
  - ANXIETY [None]
  - ARTHROPATHY [None]
  - ATTENTION DEFICIT/HYPERACTIVITY DISORDER [None]
  - AUTOIMMUNE DISORDER [None]
  - BACK PAIN [None]
  - BIPOLAR DISORDER [None]
  - BREAST DISCHARGE [None]
  - BREAST DISORDER FEMALE [None]
  - BURNS SECOND DEGREE [None]
  - CELLULITIS [None]
  - CONCUSSION [None]
  - CONSTIPATION [None]
  - CONTUSION [None]
  - CONVULSION [None]
  - DENTAL CARIES [None]
  - DEPRESSION [None]
  - DERMATITIS [None]
  - DIZZINESS POSTURAL [None]
  - DYSURIA [None]
  - EAR PAIN [None]
  - ECZEMA [None]
  - EPILEPSY [None]
  - FALL [None]
  - FALLOPIAN TUBE DISORDER [None]
  - FATIGUE [None]
  - FRACTURE [None]
  - GASTRIC CANCER [None]
  - GASTROINTESTINAL HAEMORRHAGE [None]
  - GASTROOESOPHAGEAL REFLUX DISEASE [None]
  - HEAD INJURY [None]
  - HELICOBACTER GASTRITIS [None]
  - HERNIA [None]
  - HERPES SIMPLEX [None]
  - HIATUS HERNIA [None]
  - HORMONE REPLACEMENT THERAPY [None]
  - HUMERUS FRACTURE [None]
  - HYPERSOMNIA [None]
  - HYPERTENSION [None]
  - HYPOAESTHESIA [None]
  - HYPOCALCAEMIA [None]
  - HYPOPROTEINAEMIA [None]
  - HYPOTENSION [None]
  - INCISION SITE COMPLICATION [None]
  - INJURY [None]
  - INTERNAL HERNIA [None]
  - LOSS OF CONSCIOUSNESS [None]
  - MALABSORPTION [None]
  - MALNUTRITION [None]
  - MIGRAINE [None]
  - MUSCLE SPASMS [None]
  - MYOFASCIAL PAIN SYNDROME [None]
  - NAUSEA [None]
  - ORAL INFECTION [None]
  - ORAL TORUS [None]
  - OSTEOMYELITIS [None]
  - OSTEONECROSIS [None]
  - OVERDOSE [None]
  - PAIN IN JAW [None]
  - PEPTIC ULCER [None]
  - PNEUMONIA [None]
  - POSTOPERATIVE WOUND INFECTION [None]
  - PULPITIS DENTAL [None]
  - RESPIRATORY FAILURE [None]
  - RHINITIS ALLERGIC [None]
  - RIB FRACTURE [None]
  - SCIATIC NERVE INJURY [None]
  - SHORT-BOWEL SYNDROME [None]
  - SINUSITIS [None]
  - SKIN DISORDER [None]
  - SMALL INTESTINAL OBSTRUCTION [None]
  - SPLEEN DISORDER [None]
  - STAPHYLOCOCCAL INFECTION [None]
  - STOMATITIS [None]
  - TEMPOROMANDIBULAR JOINT SYNDROME [None]
  - TOOTH DISORDER [None]
  - TRANSFUSION REACTION [None]
  - TRISMUS [None]
  - URINARY TRACT INFECTION [None]
  - VARICOSE VEIN [None]
  - VOLVULUS [None]
  - WEIGHT DECREASED [None]
